FAERS Safety Report 10269568 (Version 1)
Quarter: 2014Q2

REPORT INFORMATION
  Report Type: Spontaneous
  Country: AT (occurrence: None)
  Receive Date: 20140620
  Receipt Date: 20140620
  Transmission Date: 20141212
  Serious: Yes (Other)
  Sender: FDA-Public Use
  Company Number: LIT-039-14-AU

PATIENT
  Age: 14 Year
  Sex: Female

DRUGS (3)
  1. HUMAN NORMAL IMMUNOGLOBULIN (IV) (TRADENAME UNKNOWN) [Suspect]
     Indication: CHRONIC INFLAMMATORY DEMYELINATING POLYRADICULONEUROPATHY
     Route: 042
  2. PREDNISOLONE [Concomitant]
  3. RITUXIMAB [Concomitant]

REACTIONS (1)
  - Pulmonary embolism [None]
